FAERS Safety Report 17019807 (Version 1)
Quarter: 2019Q4

REPORT INFORMATION
  Report Type: Spontaneous
  Country: US (occurrence: US)
  Receive Date: 20191112
  Receipt Date: 20191112
  Transmission Date: 20200122
  Serious: No
  Sender: FDA-Public Use
  Company Number: US-BTG-201900119

PATIENT
  Age: 29 Year
  Sex: Female

DRUGS (1)
  1. CROFAB [Suspect]
     Active Substance: CROTALIDAE POLYVALENT IMMUNE FAB (OVINE)
     Indication: SNAKE BITE
     Dosage: 6 VIALS (INITIAL NUMBER OF VIALS)
     Route: 065
     Dates: start: 201808

REACTIONS (3)
  - Prothrombin time prolonged [Unknown]
  - Rash [Unknown]
  - Peripheral swelling [Recovering/Resolving]
